FAERS Safety Report 25621143 (Version 2)
Quarter: 2025Q3

REPORT INFORMATION
  Report Type: Spontaneous
  Country: GB (occurrence: GB)
  Receive Date: 20250730
  Receipt Date: 20250811
  Transmission Date: 20251020
  Serious: Yes (Other)
  Sender: AUROBINDO
  Company Number: GB-MLMSERVICE-20250714-PI570726-00270-1

PATIENT
  Age: 34 Year
  Sex: Female

DRUGS (1)
  1. PREDNISOLONE [Suspect]
     Active Substance: PREDNISOLONE
     Indication: Brain radiation necrosis
     Route: 048

REACTIONS (2)
  - Steroid diabetes [Unknown]
  - Exposure during pregnancy [Unknown]
